FAERS Safety Report 18791484 (Version 1)
Quarter: 2021Q1

REPORT INFORMATION
  Report Type: Spontaneous
  Country: CA (occurrence: CA)
  Receive Date: 20210126
  Receipt Date: 20210126
  Transmission Date: 20210419
  Serious: Yes (Other)
  Sender: FDA-Public Use
  Company Number: CA-JNJFOC-20210135594

PATIENT
  Age: 65 Year
  Sex: Male

DRUGS (3)
  1. INFLIXIMAB, RECOMBINANT [Suspect]
     Active Substance: INFLIXIMAB
     Indication: COLITIS ULCERATIVE
     Route: 042
  2. PREDNISONE. [Concomitant]
     Active Substance: PREDNISONE
  3. PANTOPRAZOLE [Concomitant]
     Active Substance: PANTOPRAZOLE
     Indication: GASTROOESOPHAGEAL REFLUX DISEASE

REACTIONS (9)
  - Insomnia [Unknown]
  - Paraesthesia [Unknown]
  - Blood pressure fluctuation [Unknown]
  - Fatigue [Unknown]
  - Urinary incontinence [Unknown]
  - Seizure [Unknown]
  - Heart rate irregular [Unknown]
  - Dizziness [Unknown]
  - Pruritus [Unknown]
